FAERS Safety Report 4826096-0 (Version None)
Quarter: 2005Q4

REPORT INFORMATION
  Report Type: 
  Country: None (occurrence: None)
  Receive Date: 20051109
  Receipt Date: 20051028
  Transmission Date: 20060501
  Serious: Yes (Death)
  Sender: FDA-Public Use
  Company Number: USA-2005-0021643

PATIENT
  Age: 46 Year
  Sex: Female

DRUGS (7)
  1. OXYCONTIN [Suspect]
     Indication: PAIN
     Dosage: 40 MG, BID,
     Dates: start: 20050601
  2. ZANTAC [Concomitant]
  3. XANAX [Concomitant]
  4. PROMETHAZINE [Concomitant]
  5. SOMA [Concomitant]
  6. NEURONTIN [Concomitant]
  7. LORCET-HD [Concomitant]

REACTIONS (1)
  - PNEUMONIA [None]
